FAERS Safety Report 7723313-4 (Version None)
Quarter: 2011Q3

REPORT INFORMATION
  Report Type: 
  Country: None (occurrence: None)
  Receive Date: 20110901
  Receipt Date: 20110901
  Transmission Date: 20111222
  Serious: No
  Sender: FDA-Public Use
  Company Number: None

PATIENT
  Age: 49 Year
  Sex: Female
  Weight: 74.842 kg

DRUGS (1)
  1. METROGEL [Suspect]
     Indication: ROSACEA
     Dosage: DAILY
     Route: 061
     Dates: start: 20110823, end: 20110831

REACTIONS (1)
  - HEADACHE [None]
